FAERS Safety Report 6468959-9 (Version None)
Quarter: 2009Q4

REPORT INFORMATION
  Report Type: 
  Country: None (occurrence: None)
  Receive Date: 20091203
  Receipt Date: 20090210
  Transmission Date: 20100525
  Serious: Yes (Hospitalization)
  Sender: FDA-Public Use
  Company Number: US-ELI_LILLY_AND_COMPANY-US200605004041

PATIENT
  Sex: Male
  Weight: 106.58 kg

DRUGS (5)
  1. ZYPREXA [Suspect]
     Dosage: 30 MG, UNK
     Dates: start: 19970206
  2. ZYPREXA [Suspect]
     Dosage: 15 MG, UNK
     Dates: start: 20000501, end: 20080401
  3. ZYPREXA [Suspect]
     Dosage: 20 MG, UNK
  4. HALOPERIDOL [Concomitant]
     Dates: start: 19910101, end: 19980101
  5. LITHIUM [Concomitant]
     Dates: start: 19910101, end: 19980101

REACTIONS (5)
  - DIABETES MELLITUS [None]
  - METABOLIC DISORDER [None]
  - MYOCARDIAL INFARCTION [None]
  - OVERDOSE [None]
  - VISION BLURRED [None]
